FAERS Safety Report 7287795-7 (Version None)
Quarter: 2011Q1

REPORT INFORMATION
  Report Type: 
  Country: None (occurrence: None)
  Receive Date: 20110207
  Receipt Date: 20110207
  Transmission Date: 20110831
  Serious: Yes (Life-Threatening)
  Sender: FDA-Public Use
  Company Number: None

PATIENT
  Sex: Female
  Weight: 62.5964 kg

DRUGS (1)
  1. LOSARTAN - HCTZ, 100-25 MG T, TEVA [Suspect]
     Indication: HYPERTENSION
     Dosage: 1 TABLET DAILY
     Dates: start: 20101213, end: 20101220

REACTIONS (3)
  - BLOOD PRESSURE INCREASED [None]
  - PRODUCT SUBSTITUTION ISSUE [None]
  - ECONOMIC PROBLEM [None]
